FAERS Safety Report 21307828 (Version 1)
Quarter: 2022Q3

REPORT INFORMATION
  Report Type: Report from Study
  Country: CO (occurrence: CO)
  Receive Date: 20220908
  Receipt Date: 20220908
  Transmission Date: 20221027
  Serious: Yes (Hospitalization)
  Sender: FDA-Public Use
  Company Number: CO-ASTELLAS-2022US027180

PATIENT
  Age: 56 Year
  Sex: Male

DRUGS (2)
  1. TACROLIMUS [Suspect]
     Active Substance: TACROLIMUS
     Indication: Renal transplant
     Route: 048
     Dates: start: 20151021
  2. TACROLIMUS [Suspect]
     Active Substance: TACROLIMUS
     Route: 048

REACTIONS (17)
  - Toxicity to various agents [Not Recovered/Not Resolved]
  - Dizziness [Unknown]
  - Dysarthria [Unknown]
  - Vision blurred [Not Recovered/Not Resolved]
  - Immunosuppressant drug level increased [Not Recovered/Not Resolved]
  - Hypotension [Not Recovered/Not Resolved]
  - Speech disorder [Unknown]
  - Amnesia [Unknown]
  - Oxygen saturation decreased [Unknown]
  - Tremor [Unknown]
  - Pain in extremity [Unknown]
  - Condition aggravated [Unknown]
  - Spinal pain [Unknown]
  - Condition aggravated [Unknown]
  - General physical health deterioration [Not Recovered/Not Resolved]
  - Headache [Not Recovered/Not Resolved]
  - Gait disturbance [Recovering/Resolving]

NARRATIVE: CASE EVENT DATE: 20220101
